FAERS Safety Report 8219549-9 (Version None)
Quarter: 2012Q1

REPORT INFORMATION
  Report Type: 
  Country: None (occurrence: None)
  Receive Date: 20120319
  Receipt Date: 20120309
  Transmission Date: 20120608
  Serious: Yes (Other)
  Sender: FDA-Public Use
  Company Number: PHHY2012NL020932

PATIENT
  Sex: Female

DRUGS (1)
  1. ITRACONAZOLE [Suspect]
     Dosage: 1 DF, BID
     Route: 048
     Dates: start: 20120221, end: 20120226

REACTIONS (1)
  - HAEMOLYSIS [None]
